FAERS Safety Report 9536466 (Version 1)
Quarter: 2013Q2

REPORT INFORMATION
  Report Type: Spontaneous
  Country: US (occurrence: None)
  Receive Date: 20130503
  Receipt Date: 20130503
  Transmission Date: 20140414
  Serious: No
  Sender: FDA-Public Use
  Company Number: 1000043990

PATIENT
  Sex: Male

DRUGS (24)
  1. DALIRESP [Suspect]
  2. VERAMYST (FLUTICASONE FUROATE) (27.5 MICROGRAM) (FLUTICASONE FUROATE) [Concomitant]
  3. MIRALAX (POLYETHYLENE GLYCOL) (17 GRAM) (POLYETHYLENE GLYCOL) [Concomitant]
  4. ACCUPRIL (QUINAPRIL HYDROCHLORIDE) (20 MILLIGRAM, TABLETS) (QUINAPRIL HYDROCHLORIDE)? [Concomitant]
  5. INSULIN GLARGINE (INSULIN GLARGINE) (INJECTION) (INSULIN GLARGINE)? [Concomitant]
  6. SINGULAIR (MONTELUKAST SODIUM) (10 MILLIGRAM, TABLETS) (MONTELUKAST SODIUM) [Concomitant]
  7. JANUMET (SITAGLIPTIN, METFORMIN) (SITAGLIPTIN, METFORMIN) [Concomitant]
  8. PRILOSEC (OMEPRAZOLE) (20 MILLIGRAM, CAPSULES) (OMEPRAZOLE) [Concomitant]
  9. ROXANOL (MORPHINE SULFATE) (SOLUTION) (MORPHINE SULFATE) [Concomitant]
  10. FLEXERIL (CYCLOBENZAPRINE) (10 MILLIGRAM, TABLETS) (CYCLOBENZAPRINE) [Concomitant]
  11. OXYGEN (OXYGEN) OXYGEN) [Concomitant]
  12. LIDODERM (LIDOCAINE) (700 MILLIGRAM, POLUTICE OR PATCH) (LIDOCAINE) [Concomitant]
  13. KLOR-CON (POTASSIUM CHLORIDE) (10 MILLIEQUIVALENTS, TABLETS) (POTASSIUM CHLORIDE) [Concomitant]
  14. LASIX (FUROSEMIDE) (40 MILLIGRAM, TABLETS) (FUROSEMIDE) [Concomitant]
  15. DUONEB (ALBUTEROL, IPRATROPIUM) (ALBUTEROL, IPRATROPIUM) [Concomitant]
  16. ASPIRIN (ACETYLSALICYLIC ACID) (TABLETS) (ACETYLSALICYLIC ACID) [Concomitant]
  17. DECADRON (DEXAMETHASONE) (1 MILLIGRAM, TABLETS) (DEXAMETHASONE) [Concomitant]
  18. OMNICEF (CEFDINIR) (300 MILLIGRAM, CAPSULES) (CEFDINIR) [Concomitant]
  19. ADVAIR (FLUTICASONE, SALMETEROL) (FLUTICASONE, SALMETEROL) [Concomitant]
  20. MS CONTIN (MORPHINE SULFATE) (30 MILLIGRAM, TABLETS) (MORPHINE SULFATE) [Concomitant]
  21. LORTAB (HYDROCODONE, PARACETAMOL) (HYDROCODONE, PARACETAMOL) [Concomitant]
  22. NOVOLOG (INSULIN ASPART) (INSULIN ASPART) [Concomitant]
  23. TESSALON (BENZONATATE) (300 MILLIGRAM, CAPSULES) (BENZONATATE) [Concomitant]
  24. ATIVAN (LORAZEPAM) (LORAZEPAM) [Concomitant]

REACTIONS (1)
  - Nausea [None]
